FAERS Safety Report 24089437 (Version 1)
Quarter: 2024Q3

REPORT INFORMATION
  Report Type: Report from Study
  Country: RU (occurrence: None)
  Receive Date: 20240715
  Receipt Date: 20240715
  Transmission Date: 20241017
  Serious: Yes (Hospitalization)
  Sender: ASTRAZENECA
  Company Number: 2019SF10747

PATIENT
  Sex: Male

DRUGS (1)
  1. BRILINTA [Suspect]
     Active Substance: TICAGRELOR
     Dosage: 60 MG PER DAY INSTEAD OF 90 MG BID BID DUE TO FINANCIAL REASONS
     Route: 048

REACTIONS (3)
  - Disease recurrence [Unknown]
  - Intentional product misuse [Unknown]
  - Insurance issue [Unknown]
